FAERS Safety Report 7658389-6 (Version None)
Quarter: 2011Q3

REPORT INFORMATION
  Report Type: 
  Country: None (occurrence: None)
  Receive Date: 20110805
  Receipt Date: 20090122
  Transmission Date: 20111222
  Serious: Yes (Other)
  Sender: FDA-Public Use
  Company Number: US-BAYER-US-2006-038192

PATIENT
  Age: 36 Year
  Sex: Male
  Weight: 77.098 kg

DRUGS (39)
  1. OMNISCAN [Suspect]
     Indication: NUCLEAR MAGNETIC RESONANCE IMAGING BRAIN
     Route: 048
     Dates: start: 20070122, end: 20070122
  2. OMNISCAN [Suspect]
  3. TRIAMCINOLONE DIACETATE [Concomitant]
  4. CALCIUM ACETATE [Concomitant]
  5. PROTONIX [Concomitant]
  6. LYRICA [Concomitant]
  7. CLOTRIMAZOLE [Concomitant]
  8. ZOFRAN [Concomitant]
  9. AMBIEN [Concomitant]
  10. OMNISCAN [Suspect]
     Indication: NUCLEAR MAGNETIC RESONANCE IMAGING
     Dosage: 20 ML, UNK
     Route: 042
     Dates: start: 20050805, end: 20050805
  11. OMNISCAN [Suspect]
     Indication: ANGIOGRAM
     Dates: start: 20050811, end: 20050811
  12. OMNISCAN [Suspect]
     Dates: start: 20050815, end: 20050815
  13. ACYCLOVIR [Concomitant]
  14. PREDNISONE [Concomitant]
  15. DIFLUCAN [Concomitant]
  16. REGLAN [Concomitant]
  17. MAGNEVIST [Suspect]
     Dosage: 60 ML, 1 DOSE
     Route: 042
     Dates: start: 20070118, end: 20070118
  18. CELLCEPT [Concomitant]
  19. SYNTHROID [Concomitant]
  20. BACLOFEN [Concomitant]
  21. MAGNEVIST [Suspect]
     Indication: NUCLEAR MAGNETIC RESONANCE IMAGING
     Dosage: 40 ML, 1 DOSE
     Route: 042
     Dates: start: 20051014, end: 20051014
  22. MAGNEVIST [Suspect]
  23. IOPROMIDE [Concomitant]
     Indication: ANGIOGRAM
     Dosage: 100 ML, 2 DOSES [DAILY DOSE: 200 ML]
     Route: 042
     Dates: start: 20051012, end: 20051012
  24. CYCLOSPORINE [Concomitant]
  25. PANTOPRAZOLE SODIUM [Concomitant]
  26. CYCLOSPORINE [Concomitant]
  27. LIPITOR [Concomitant]
  28. PHOSLO [Concomitant]
  29. OMNISCAN [Suspect]
     Route: 042
     Dates: start: 20060228, end: 20060228
  30. OMNISCAN [Suspect]
     Dosage: 15 ML, UNK
     Dates: start: 20060710, end: 20060710
  31. BUSULFAN [Concomitant]
     Indication: MULTIPLE MYELOMA
     Dosage: UNK, UNK
     Dates: start: 20050715
  32. FLUCONAZOLE [Concomitant]
  33. MAGNEVIST [Suspect]
     Indication: ANGIOGRAM
     Dosage: UNK UNK, ONCE
     Dates: start: 20040610, end: 20040610
  34. MELPHALAN HYDROCHLORIDE [Concomitant]
  35. EPOETIN NOS [Concomitant]
     Dosage: 40000 UNITS, 1X/WEEK [DAILY DOSE: 5640 IU]
  36. TESTOSTERONE [Concomitant]
  37. BACTROBAN [Concomitant]
  38. IOPROMIDE [Concomitant]
     Dosage: UNK, 1 DOSE
     Dates: start: 20050921, end: 20050921
  39. SEVELAMER [Concomitant]

REACTIONS (22)
  - ARTHRALGIA [None]
  - MUSCULOSKELETAL PAIN [None]
  - ANXIETY [None]
  - ANHEDONIA [None]
  - PAIN [None]
  - NEPHROGENIC SYSTEMIC FIBROSIS [None]
  - INSOMNIA [None]
  - PAIN IN EXTREMITY [None]
  - ABDOMINAL PAIN UPPER [None]
  - SKIN OEDEMA [None]
  - SKIN DISORDER [None]
  - INJURY [None]
  - SKIN EXFOLIATION [None]
  - MOBILITY DECREASED [None]
  - SKIN HYPERTROPHY [None]
  - SWELLING [None]
  - PRURITUS [None]
  - SCAR [None]
  - DRY SKIN [None]
  - COORDINATION ABNORMAL [None]
  - WALKING AID USER [None]
  - WHEELCHAIR USER [None]
